FAERS Safety Report 10017677 (Version 1)
Quarter: 2014Q1

REPORT INFORMATION
  Report Type: Spontaneous
  Country: US (occurrence: None)
  Receive Date: 20140313
  Receipt Date: 20140313
  Transmission Date: 20141002
  Serious: Yes (Life-Threatening, Disabling)
  Sender: FDA-Public Use
  Company Number: None

PATIENT
  Age: 68 Year
  Sex: Female
  Weight: 73.94 kg

DRUGS (4)
  1. FLUPHENAZINE DECANOATE [Suspect]
     Indication: BIPOLAR DISORDER
     Dates: start: 20140106
  2. FLUPHENAZINE DECANOATE [Suspect]
     Indication: SCHIZOPHRENIA
     Dates: start: 20140106
  3. LISINOPRIL [Concomitant]
  4. RED YEAST RICE [Concomitant]

REACTIONS (16)
  - Bone pain [None]
  - Arthralgia [None]
  - Arthralgia [None]
  - Abasia [None]
  - Cough [None]
  - Monoplegia [None]
  - Gait disturbance [None]
  - Myalgia [None]
  - Asthenia [None]
  - Hypertension [None]
  - Arterial occlusive disease [None]
  - Cerebrovascular accident [None]
  - Alopecia [None]
  - Blood prolactin increased [None]
  - Renal disorder [None]
  - Weight increased [None]
